FAERS Safety Report 9178274 (Version 1)
Quarter: 2013Q1

REPORT INFORMATION
  Report Type: Spontaneous
  Country: RU (occurrence: RU)
  Receive Date: 20130321
  Receipt Date: 20130321
  Transmission Date: 20140127
  Serious: Yes (Other)
  Sender: FDA-Public Use
  Company Number: RU-ROCHE-1204892

PATIENT
  Age: 30 Year
  Sex: Female
  Weight: 115 kg

DRUGS (2)
  1. XENICAL [Suspect]
     Indication: OBESITY
     Route: 048
     Dates: start: 201209
  2. XENICAL [Suspect]
     Route: 065

REACTIONS (1)
  - Haematochezia [Not Recovered/Not Resolved]
